FAERS Safety Report 9209647 (Version 2)
Quarter: 2013Q2

REPORT INFORMATION
  Report Type: Report from Study
  Country: US (occurrence: US)
  Receive Date: 20130404
  Receipt Date: 20130418
  Transmission Date: 20140414
  Serious: Yes (Other)
  Sender: FDA-Public Use
  Company Number: US-BAYER-2013-032046

PATIENT
  Age: 79 Year
  Sex: Female

DRUGS (1)
  1. STIVARGA [Suspect]
     Indication: COLON CANCER
     Dosage: 160 MG, QD
     Route: 048
     Dates: start: 20130307, end: 20130318

REACTIONS (4)
  - Abdominal pain [Recovered/Resolved]
  - Swollen tongue [Recovered/Resolved]
  - Oral candidiasis [Recovered/Resolved]
  - Constipation [Recovering/Resolving]
